FAERS Safety Report 6140422-4 (Version None)
Quarter: 2009Q2

REPORT INFORMATION
  Report Type: 
  Country: None (occurrence: None)
  Receive Date: 20090401
  Receipt Date: 20090323
  Transmission Date: 20091009
  Serious: Yes (Hospitalization)
  Sender: FDA-Public Use
  Company Number: JP-ABBOTT-09P-087-0565180-00

PATIENT
  Age: 82 Year
  Sex: Male

DRUGS (5)
  1. LEUPLIN SR FOR INJECTION 11.25 MG [Suspect]
     Indication: PROSTATE CANCER STAGE I
     Dates: start: 20060525
  2. CASODEX [Concomitant]
     Indication: PROSTATE CANCER STAGE I
     Route: 048
     Dates: start: 20060408
  3. AVISHOT [Concomitant]
     Indication: BENIGN PROSTATIC HYPERPLASIA
     Route: 048
     Dates: end: 20071024
  4. UBRETID [Concomitant]
     Indication: NEUROGENIC BLADDER
     Route: 048
  5. URIEF [Concomitant]
     Indication: BENIGN PROSTATIC HYPERPLASIA
     Route: 048
     Dates: start: 20071025

REACTIONS (5)
  - CONSTIPATION [None]
  - FEMORAL NECK FRACTURE [None]
  - PNEUMONIA ASPIRATION [None]
  - SUPRAVENTRICULAR EXTRASYSTOLES [None]
  - URINARY TRACT INFECTION [None]
